FAERS Safety Report 22612295 (Version 2)
Quarter: 2023Q2

REPORT INFORMATION
  Report Type: Spontaneous
  Country: CZ (occurrence: CZ)
  Receive Date: 20230617
  Receipt Date: 20230622
  Transmission Date: 20230722
  Serious: Yes (Death, Life-Threatening, Hospitalization, Other)
  Sender: FDA-Public Use
  Company Number: CZ-MACLEODS PHARMACEUTICALS US LTD-MAC2023041848

PATIENT

DRUGS (1)
  1. METFORMIN [Suspect]
     Active Substance: METFORMIN HYDROCHLORIDE
     Indication: Diabetes mellitus
     Dosage: UNK
     Route: 065

REACTIONS (5)
  - Multiple organ dysfunction syndrome [Fatal]
  - Colitis ischaemic [Fatal]
  - Cutaneous vasculitis [Fatal]
  - Disseminated intravascular coagulation [Fatal]
  - Circulatory collapse [Fatal]
